FAERS Safety Report 23113841 (Version 4)
Quarter: 2024Q2

REPORT INFORMATION
  Report Type: Spontaneous
  Country: US (occurrence: US)
  Receive Date: 20231027
  Receipt Date: 20240521
  Transmission Date: 20240716
  Serious: Yes (Hospitalization, Other)
  Sender: FDA-Public Use
  Company Number: US-GSKCCFUS-Case-01839627_AE-102831

PATIENT

DRUGS (1)
  1. BENLYSTA [Suspect]
     Active Substance: BELIMUMAB
     Indication: Product used for unknown indication
     Dosage: UNK
     Route: 058

REACTIONS (7)
  - Cardiac failure [Unknown]
  - Respiratory failure [Unknown]
  - Renal failure [Unknown]
  - Atrial fibrillation [Recovering/Resolving]
  - Asthma [Unknown]
  - Hypersensitivity [Unknown]
  - Systemic lupus erythematosus [Unknown]
